FAERS Safety Report 15478000 (Version 1)
Quarter: 2018Q4

REPORT INFORMATION
  Report Type: Spontaneous
  Country: US (occurrence: US)
  Receive Date: 20181002
  Receipt Date: 20181002
  Transmission Date: 20190205
  Serious: No
  Sender: FDA-Public Use
  Company Number: None

PATIENT
  Age: 68 Year
  Sex: Male

DRUGS (5)
  1. SYMBICORT [Suspect]
     Active Substance: BUDESONIDE\FORMOTEROL FUMARATE DIHYDRATE
  2. TOBRAMYCIN  300MG/5ML [Suspect]
     Active Substance: TOBRAMYCIN
     Indication: BRONCHIECTASIS
     Dosage: 1 AMPULE EVERY 12 HOURS INHALED
     Route: 055
     Dates: start: 20150916
  3. PRAVASTATIN. [Concomitant]
     Active Substance: PRAVASTATIN
  4. ALBUTEROL. [Concomitant]
     Active Substance: ALBUTEROL
  5. ANORA ELILIPTE [Concomitant]

REACTIONS (1)
  - Lung infection [None]

NARRATIVE: CASE EVENT DATE: 20180929
